FAERS Safety Report 17179369 (Version 2)
Quarter: 2019Q4

REPORT INFORMATION
  Report Type: Spontaneous
  Country: JP (occurrence: JP)
  Receive Date: 20191219
  Receipt Date: 20191227
  Transmission Date: 20200122
  Serious: Yes (Other)
  Sender: FDA-Public Use
  Company Number: JP-PFIZER INC-2019544105

PATIENT
  Age: 7 Decade
  Sex: Female
  Weight: 94 kg

DRUGS (10)
  1. PREDNISOLONE. [Concomitant]
     Active Substance: PREDNISOLONE
     Indication: DIFFUSE LARGE B-CELL LYMPHOMA STAGE IV
     Dosage: 100 MG/M2, CYCLIC (DAILY, DAYS 1 TO 5)
  2. CYCLOPHOSPHAMIDE. [Concomitant]
     Active Substance: CYCLOPHOSPHAMIDE
     Indication: DIFFUSE LARGE B-CELL LYMPHOMA STAGE IV
  3. DOXORUBICIN HCL [Suspect]
     Active Substance: DOXORUBICIN HYDROCHLORIDE
     Indication: DIFFUSE LARGE B-CELL LYMPHOMA STAGE IV
     Dosage: 50 MG/M2, CYCLIC (DAY 1)
  4. PREDNISOLONE. [Concomitant]
     Active Substance: PREDNISOLONE
     Indication: INVASIVE DUCTAL BREAST CARCINOMA
     Dosage: 100 MG, CYCLIC (100 MG/DAY, DAY 1-5)
  5. VINCRISTINE [Concomitant]
     Active Substance: VINCRISTINE
     Indication: INVASIVE DUCTAL BREAST CARCINOMA
     Dosage: 1.4 MG/M2, CYCLIC (DAY 1)
  6. VINCRISTINE [Concomitant]
     Active Substance: VINCRISTINE
     Indication: DIFFUSE LARGE B-CELL LYMPHOMA STAGE IV
  7. CYCLOPHOSPHAMIDE. [Concomitant]
     Active Substance: CYCLOPHOSPHAMIDE
     Indication: INVASIVE DUCTAL BREAST CARCINOMA
     Dosage: 750 MG/M2, CYCLIC (DAY 1)
  8. DOXORUBICIN HCL [Suspect]
     Active Substance: DOXORUBICIN HYDROCHLORIDE
     Indication: INVASIVE DUCTAL BREAST CARCINOMA
  9. RITUXIMAB. [Concomitant]
     Active Substance: RITUXIMAB
     Indication: INVASIVE DUCTAL BREAST CARCINOMA
  10. RITUXIMAB. [Concomitant]
     Active Substance: RITUXIMAB
     Indication: DIFFUSE LARGE B-CELL LYMPHOMA STAGE IV
     Dosage: 375 MG/M2, CYCLIC (DAY 2)

REACTIONS (2)
  - Wheezing [Unknown]
  - Hypertrophic cardiomyopathy [Unknown]
